FAERS Safety Report 24960141 (Version 1)
Quarter: 2025Q1

REPORT INFORMATION
  Report Type: Report from Study
  Country: US (occurrence: US)
  Receive Date: 20250212
  Receipt Date: 20250212
  Transmission Date: 20250409
  Serious: No
  Sender: SANDOZ
  Company Number: US-SANDOZ-SDZ2024US077951

PATIENT
  Age: 12 Year
  Sex: Female

DRUGS (6)
  1. OMNITROPE [Suspect]
     Active Substance: SOMATROPIN
     Indication: Hypopituitarism
     Dosage: 1.7 MG, QD
     Route: 058
     Dates: start: 20240729
  2. OMNITROPE [Suspect]
     Active Substance: SOMATROPIN
     Indication: Hypopituitarism
     Dosage: 1.7 MG, QD
     Route: 058
     Dates: start: 20240729
  3. OMNITROPE [Suspect]
     Active Substance: SOMATROPIN
     Dosage: 1.7 MG, QD
     Route: 058
  4. OMNITROPE [Suspect]
     Active Substance: SOMATROPIN
     Dosage: 1.7 MG, QD
     Route: 058
  5. OMNITROPE [Suspect]
     Active Substance: SOMATROPIN
     Indication: Short stature
     Route: 065
  6. OMNITROPE [Suspect]
     Active Substance: SOMATROPIN
     Indication: Short stature
     Route: 065

REACTIONS (4)
  - Incorrect dose administered by device [Unknown]
  - Accidental exposure to product [Unknown]
  - Exposure via skin contact [Unknown]
  - Device leakage [Unknown]

NARRATIVE: CASE EVENT DATE: 20240729
